FAERS Safety Report 15085342 (Version 1)
Quarter: 2018Q2

REPORT INFORMATION
  Report Type: Spontaneous
  Country: DE (occurrence: DE)
  Receive Date: 20180628
  Receipt Date: 20180628
  Transmission Date: 20180711
  Serious: Yes (Congenital Anomaly)
  Sender: FDA-Public Use
  Company Number: DE-ALLERGAN-1832663US

PATIENT
  Age: 1 Day
  Sex: Female
  Weight: 4.16 kg

DRUGS (4)
  1. CYTOTEC [Concomitant]
     Active Substance: MISOPROSTOL
     Indication: MATERNAL EXPOSURE TIMING UNSPECIFIED
     Dosage: UNK
     Route: 064
     Dates: start: 20180125, end: 20180125
  2. FEMIBION SCHWANGERSCHAFT [Concomitant]
     Indication: MATERNAL EXPOSURE TIMING UNSPECIFIED
     Dosage: 0.8 MG, QD
     Route: 064
     Dates: start: 20170409, end: 20180125
  3. QUENSYL [Suspect]
     Active Substance: HYDROXYCHLOROQUINE
     Indication: MATERNAL EXPOSURE TIMING UNSPECIFIED
     Dosage: 200 MG, UNK
     Route: 064
     Dates: start: 20170409, end: 20170925
  4. CITALOPRAM HYDROBROMIDE - BP [Suspect]
     Active Substance: CITALOPRAM HYDROBROMIDE
     Indication: MATERNAL EXPOSURE TIMING UNSPECIFIED
     Dosage: 10 MG, UNK
     Route: 064
     Dates: start: 20170409, end: 20171222

REACTIONS (2)
  - Ventricular septal defect [Not Recovered/Not Resolved]
  - Foetal exposure during pregnancy [Unknown]

NARRATIVE: CASE EVENT DATE: 20180125
